FAERS Safety Report 19304055 (Version 3)
Quarter: 2021Q2

REPORT INFORMATION
  Report Type: Report from Study
  Country: PE (occurrence: PE)
  Receive Date: 20210525
  Receipt Date: 20210621
  Transmission Date: 20210717
  Serious: Yes (Other)
  Sender: FDA-Public Use
  Company Number: PE-SEATTLE GENETICS-2021SGN02669

PATIENT
  Sex: Male

DRUGS (2)
  1. BRENTUXIMAB VEDOTIN [Suspect]
     Active Substance: BRENTUXIMAB VEDOTIN
     Indication: HODGKIN^S DISEASE
     Dosage: 115 MILLIGRAM, Q3WEEKS
     Route: 042
     Dates: start: 20200912
  2. BRENTUXIMAB VEDOTIN [Suspect]
     Active Substance: BRENTUXIMAB VEDOTIN
     Dosage: 117 MILLIGRAM, Q3WEEKS
     Route: 042
     Dates: start: 20201009

REACTIONS (5)
  - Decreased appetite [Unknown]
  - Hodgkin^s disease [Unknown]
  - Lymphadenopathy [Unknown]
  - Neoplasm progression [Unknown]
  - Pain [Unknown]
